FAERS Safety Report 5999394-5 (Version None)
Quarter: 2008Q4

REPORT INFORMATION
  Report Type: 
  Country: None (occurrence: None)
  Receive Date: 20081215
  Receipt Date: 20080804
  Transmission Date: 20090506
  Serious: No
  Sender: FDA-Public Use
  Company Number: US-AMGEN-KDL297806

PATIENT
  Sex: Female

DRUGS (8)
  1. ENBREL [Suspect]
     Indication: RHEUMATOID ARTHRITIS
     Route: 058
     Dates: start: 20010101
  2. TETRACYCLINE [Concomitant]
  3. DIOVAN [Concomitant]
  4. AMLODIPINE [Concomitant]
  5. COREG [Concomitant]
  6. OMEPRAZOLE [Concomitant]
  7. DARVOCET-N 100 [Concomitant]
  8. UNSPECIFIED MEDICATION [Concomitant]

REACTIONS (3)
  - BRONCHITIS [None]
  - HERPES ZOSTER [None]
  - RHEUMATOID ARTHRITIS [None]
